FAERS Safety Report 10949029 (Version 1)
Quarter: 2015Q1

REPORT INFORMATION
  Report Type: Spontaneous
  Country: US (occurrence: US)
  Receive Date: 20150324
  Receipt Date: 20150324
  Transmission Date: 20150721
  Serious: No
  Sender: FDA-Public Use
  Company Number: US-BAYER-2015-045180

PATIENT
  Age: 18 Year
  Sex: Female

DRUGS (1)
  1. SKYLA [Suspect]
     Active Substance: LEVONORGESTREL
     Indication: MENSTRUATION IRREGULAR
     Dosage: UNK UNK, CONT
     Route: 015
     Dates: start: 20150212

REACTIONS (2)
  - Menstruation delayed [Not Recovered/Not Resolved]
  - Off label use [None]
